APPROVED DRUG PRODUCT: DESYREL
Active Ingredient: TRAZODONE HYDROCHLORIDE
Strength: 300MG **Federal Register determination that product was not discontinued or withdrawn for safety or effectiveness reasons**
Dosage Form/Route: TABLET;ORAL
Application: N018207 | Product #004
Applicant: PRAGMA PHARMACEUTICALS LLC
Approved: Nov 7, 1988 | RLD: Yes | RS: No | Type: DISCN

PATENTS:
Patent 8133893 | Expires: Mar 13, 2029